FAERS Safety Report 20542921 (Version 1)
Quarter: 2022Q1

REPORT INFORMATION
  Report Type: Spontaneous
  Country: US (occurrence: US)
  Receive Date: 20220302
  Receipt Date: 20220302
  Transmission Date: 20220423
  Serious: No
  Sender: FDA-Public Use
  Company Number: US-PERRIGO-21US004692

PATIENT
  Sex: Female
  Weight: 69.841 kg

DRUGS (1)
  1. SCOPOLAMINE [Suspect]
     Active Substance: SCOPOLAMINE
     Indication: Motion sickness
     Dosage: UNKNOWN, UNKNOWN
     Route: 062
     Dates: end: 2020

REACTIONS (1)
  - Dysgeusia [Unknown]
